FAERS Safety Report 21610221 (Version 5)
Quarter: 2023Q1

REPORT INFORMATION
  Report Type: Spontaneous
  Country: US (occurrence: US)
  Receive Date: 20221117
  Receipt Date: 20230116
  Transmission Date: 20230418
  Serious: No
  Sender: FDA-Public Use
  Company Number: US-002147023-NVSC2022US257377

PATIENT
  Sex: Female

DRUGS (1)
  1. PREDNISONE [Suspect]
     Active Substance: PREDNISONE
     Indication: Product used for unknown indication
     Dosage: 10 ML
     Route: 065

REACTIONS (4)
  - Superficial injury of eye [Unknown]
  - Ocular hyperaemia [Unknown]
  - Eye infection [Unknown]
  - Product delivery mechanism issue [Unknown]
